FAERS Safety Report 9962733 (Version 1)
Quarter: 2014Q1

REPORT INFORMATION
  Report Type: Spontaneous
  Country: IL (occurrence: IL)
  Receive Date: 20140305
  Receipt Date: 20140305
  Transmission Date: 20141002
  Serious: Yes (Other)
  Sender: FDA-Public Use
  Company Number: PHHY2014IL026180

PATIENT
  Sex: Female

DRUGS (8)
  1. ONBREZ [Suspect]
     Indication: CHRONIC OBSTRUCTIVE PULMONARY DISEASE
     Dosage: 150 UG, QD
     Route: 055
  2. COUMADINE [Concomitant]
     Dosage: UNK UKN, UNK
  3. GLUCOMIN [Concomitant]
     Dosage: UNK UKN, UNK
  4. MIRO//KOJIC ACID [Concomitant]
     Dosage: UNK UKN, UNK
  5. URSOFALK [Concomitant]
     Dosage: UNK UKN, UNK
  6. CANNABIS [Concomitant]
     Indication: PAIN
     Dosage: UNK UKN, UNK
  7. ANTIARRHYTHMIC AGENTS [Concomitant]
     Indication: ARRHYTHMIA
     Dosage: UNK UKN, UNK
  8. ATORVASTATIN [Concomitant]
     Dosage: UNK UKN, UNK

REACTIONS (1)
  - Urine output increased [Not Recovered/Not Resolved]
